FAERS Safety Report 17749441 (Version 5)
Quarter: 2020Q2

REPORT INFORMATION
  Report Type: Report from Study
  Country: BE (occurrence: BE)
  Receive Date: 20200506
  Receipt Date: 20200618
  Transmission Date: 20200714
  Serious: Yes (Other)
  Sender: FDA-Public Use
  Company Number: BE-BRISTOL-MYERS SQUIBB COMPANY-BMS-2020-029596

PATIENT
  Age: 72 Year
  Sex: Male

DRUGS (2)
  1. NIVOLUMAB [Suspect]
     Active Substance: NIVOLUMAB
     Indication: RENAL CELL CARCINOMA
     Dosage: UNK
     Route: 065
     Dates: start: 20200403
  2. IPILIMUMAB [Suspect]
     Active Substance: IPILIMUMAB
     Indication: RENAL CELL CARCINOMA
     Dosage: UNK
     Route: 065
     Dates: start: 20200403

REACTIONS (14)
  - Decreased appetite [Unknown]
  - Weight increased [Unknown]
  - Depressed mood [Unknown]
  - Fatigue [Recovering/Resolving]
  - Rash macular [Unknown]
  - Aptyalism [Unknown]
  - Increased appetite [Unknown]
  - Cough [Unknown]
  - Weight decreased [Unknown]
  - Anxiety [Recovering/Resolving]
  - Poor quality sleep [Recovering/Resolving]
  - Dyspnoea [Unknown]
  - Dry mouth [Unknown]
  - Hyperthyroidism [Unknown]

NARRATIVE: CASE EVENT DATE: 20200403
